FAERS Safety Report 8440685-6 (Version None)
Quarter: 2012Q2

REPORT INFORMATION
  Report Type: 
  Country: None (occurrence: None)
  Receive Date: 20120615
  Receipt Date: 20120607
  Transmission Date: 20120825
  Serious: Yes (Other)
  Sender: FDA-Public Use
  Company Number: US-JNJFOC-20120604964

PATIENT
  Sex: Male
  Weight: 58.4 kg

DRUGS (4)
  1. REMICADE [Suspect]
     Route: 042
     Dates: start: 20120531
  2. MESALAMINE [Concomitant]
     Route: 054
  3. VITAMIN D [Concomitant]
  4. REMICADE [Suspect]
     Indication: INFLAMMATORY BOWEL DISEASE
     Route: 042
     Dates: start: 20081223

REACTIONS (1)
  - EPSTEIN-BARR VIRUS INFECTION [None]
